FAERS Safety Report 11288840 (Version 1)
Quarter: 2015Q3

REPORT INFORMATION
  Report Type: Spontaneous
  Country: DK (occurrence: DK)
  Receive Date: 20150721
  Receipt Date: 20150721
  Transmission Date: 20151125
  Serious: Yes (Hospitalization, Other)
  Sender: FDA-Public Use
  Company Number: PHHY2015DK048691

PATIENT
  Sex: Female

DRUGS (2)
  1. LINDYNETTE [Suspect]
     Active Substance: ETHINYL ESTRADIOL\GESTODENE
     Indication: DYSMENORRHOEA
     Dosage: UNK
     Route: 048
     Dates: start: 20100108, end: 20130317
  2. LINDYNETTE [Suspect]
     Active Substance: ETHINYL ESTRADIOL\GESTODENE
     Indication: CONTRACEPTION

REACTIONS (15)
  - Dyspnoea [Recovered/Resolved]
  - Pulmonary thrombosis [Unknown]
  - Walking disability [Unknown]
  - Depression [Unknown]
  - Pain in extremity [Unknown]
  - Tenderness [Unknown]
  - Factor V Leiden mutation [Unknown]
  - Gait disturbance [Unknown]
  - Thrombosis [Unknown]
  - Musculoskeletal pain [Not Recovered/Not Resolved]
  - Dizziness [Recovered/Resolved]
  - Tinnitus [Recovered/Resolved]
  - Vomiting [Recovered/Resolved]
  - Peripheral swelling [Unknown]
  - Fatigue [Unknown]
